FAERS Safety Report 4870735-5 (Version None)
Quarter: 2006Q1

REPORT INFORMATION
  Report Type: 
  Country: None (occurrence: None)
  Receive Date: 20060103
  Receipt Date: 20051222
  Transmission Date: 20060701
  Serious: Yes (Other)
  Sender: FDA-Public Use
  Company Number: GB-JNJFOC-20051205151

PATIENT
  Sex: Male

DRUGS (1)
  1. RISPERDAL CONSTA [Suspect]
     Indication: DRUG USE FOR UNKNOWN INDICATION
     Route: 030

REACTIONS (7)
  - DIFFICULTY IN WALKING [None]
  - DISORIENTATION [None]
  - DISSOCIATION [None]
  - DYSARTHRIA [None]
  - DYSSTASIA [None]
  - FATIGUE [None]
  - INCOHERENT [None]
